FAERS Safety Report 8595985-6 (Version None)
Quarter: 2012Q3

REPORT INFORMATION
  Report Type: 
  Country: None (occurrence: None)
  Receive Date: 20120815
  Receipt Date: 20120807
  Transmission Date: 20120928
  Serious: Yes (Hospitalization)
  Sender: FDA-Public Use
  Company Number: DE-ABBOTT-12P-062-0966181-00

PATIENT
  Age: 46 Year
  Sex: Female

DRUGS (3)
  1. HUMIRA [Suspect]
     Indication: RHEUMATOID ARTHRITIS
     Route: 058
     Dates: start: 20090101, end: 20111201
  2. METHOTREXATE [Concomitant]
     Indication: RHEUMATOID ARTHRITIS
     Dosage: 15-10 MG PER WEEK
     Dates: start: 19960101, end: 20040601
  3. METHOTREXATE [Concomitant]
     Dates: start: 20040801

REACTIONS (2)
  - RHEUMATOID ARTHRITIS [None]
  - OVARIAN TORSION [None]
